FAERS Safety Report 7576823-7 (Version None)
Quarter: 2011Q2

REPORT INFORMATION
  Report Type: 
  Country: None (occurrence: None)
  Receive Date: 20110628
  Receipt Date: 20110620
  Transmission Date: 20111010
  Serious: Yes (Hospitalization, Other)
  Sender: FDA-Public Use
  Company Number: US-JNJFOC-20110609742

PATIENT
  Sex: Female
  Weight: 65.77 kg

DRUGS (11)
  1. DURAGESIC-100 [Suspect]
     Indication: PAIN
     Dosage: 100 UG/HR+25 UG/HR
     Route: 062
     Dates: start: 20030101
  2. DURAGESIC-100 [Suspect]
     Indication: DIVERTICULITIS
     Dosage: 100 UG/HR+25 UG/HR
     Route: 062
     Dates: start: 20030101
  3. DURAGESIC-100 [Suspect]
     Indication: BACK PAIN
     Dosage: 100 UG/HR+25 UG/HR
     Route: 062
     Dates: start: 20030101
  4. SOMA [Concomitant]
     Indication: MUSCLE SPASMS
     Route: 048
     Dates: start: 20100101
  5. LIPITOR [Concomitant]
     Indication: OBSTRUCTION
     Route: 048
  6. DURAGESIC-100 [Suspect]
     Indication: FIBROMYALGIA
     Dosage: 100 UG/HR+25 UG/HR
     Route: 062
     Dates: start: 20030101
  7. DURAGESIC-100 [Suspect]
     Route: 062
  8. CELEXA [Concomitant]
     Indication: DEPRESSION
     Route: 048
     Dates: start: 20110101
  9. XANAX [Concomitant]
     Indication: ANXIETY
     Route: 048
     Dates: start: 20100101
  10. NEXIUM [Concomitant]
     Indication: OESOPHAGEAL SPASM
     Route: 048
  11. GABAPENTIN [Concomitant]
     Indication: FIBROMYALGIA
     Route: 048

REACTIONS (16)
  - CARDIAC INFECTION [None]
  - MUSCLE SPASMS [None]
  - FATIGUE [None]
  - DEPRESSION [None]
  - DYSPNOEA [None]
  - ASTHENIA [None]
  - PALPITATIONS [None]
  - MALAISE [None]
  - PAIN IN EXTREMITY [None]
  - ABDOMINAL MASS [None]
  - NODULE [None]
  - DRUG ADMINISTERED AT INAPPROPRIATE SITE [None]
  - CYST [None]
  - PRODUCT QUALITY ISSUE [None]
  - ANXIETY [None]
  - PRODUCT ADHESION ISSUE [None]
